FAERS Safety Report 19381465 (Version 1)
Quarter: 2021Q2

REPORT INFORMATION
  Report Type: Spontaneous
  Country: US (occurrence: US)
  Receive Date: 20210604
  Receipt Date: 20210604
  Transmission Date: 20210717
  Serious: Yes (Hospitalization)
  Sender: FDA-Public Use
  Company Number: None

PATIENT
  Age: 58 Year
  Sex: Male
  Weight: 93.15 kg

DRUGS (1)
  1. LUMASON [Suspect]
     Active Substance: SULFUR HEXAFLUORIDE
     Indication: ANAPHYLACTIC REACTION
     Route: 040
     Dates: start: 20210524, end: 20210525

REACTIONS (6)
  - Unresponsive to stimuli [None]
  - Dyspnoea [None]
  - Cold sweat [None]
  - Blood pressure decreased [None]
  - Hyperhidrosis [None]
  - Pallor [None]

NARRATIVE: CASE EVENT DATE: 20210524
